FAERS Safety Report 13454274 (Version 1)
Quarter: 2017Q2

REPORT INFORMATION
  Report Type: Spontaneous
  Country: US (occurrence: US)
  Receive Date: 20170418
  Receipt Date: 20170418
  Transmission Date: 20170830
  Serious: No
  Sender: FDA-Public Use
  Company Number: US-ALLERGAN-1668418US

PATIENT
  Sex: Female

DRUGS (3)
  1. LOW-OGESTREL [Concomitant]
     Active Substance: ETHINYL ESTRADIOL\NORGESTREL
     Indication: PRODUCT USED FOR UNKNOWN INDICATION
     Route: 048
  2. CICLOPIROX. [Concomitant]
     Active Substance: CICLOPIROX
     Indication: PRODUCT USED FOR UNKNOWN INDICATION
     Route: 048
  3. LATISSE [Suspect]
     Active Substance: BIMATOPROST
     Indication: GROWTH OF EYELASHES
     Dosage: UNK
     Route: 061
     Dates: start: 201608, end: 20160906

REACTIONS (2)
  - Inappropriate schedule of drug administration [Unknown]
  - Erythema of eyelid [Unknown]
